FAERS Safety Report 6417372-9 (Version None)
Quarter: 2009Q4

REPORT INFORMATION
  Report Type: 
  Country: None (occurrence: None)
  Receive Date: 20091027
  Receipt Date: 20091027
  Transmission Date: 20100525
  Serious: Yes (Other)
  Sender: FDA-Public Use
  Company Number: None

PATIENT
  Age: 53 Year
  Sex: Female
  Weight: 45.3597 kg

DRUGS (2)
  1. ALENDRONATE SODIUM [Suspect]
     Indication: OSTEOPOROSIS
     Dosage: 70 MG WEEKLY PO
     Route: 048
     Dates: start: 20070101, end: 20070214
  2. ALENDRONATE SODIUM [Suspect]
     Dates: start: 20080801, end: 20091024

REACTIONS (2)
  - BACK PAIN [None]
  - MUSCULAR WEAKNESS [None]
